FAERS Safety Report 4889559-8 (Version None)
Quarter: 2006Q1

REPORT INFORMATION
  Report Type: 
  Country: None (occurrence: None)
  Receive Date: 20060120
  Receipt Date: 20060109
  Transmission Date: 20060701
  Serious: Yes (Other)
  Sender: FDA-Public Use
  Company Number: 2005078594

PATIENT
  Age: 58 Year
  Sex: Female

DRUGS (3)
  1. ZOLOFT [Suspect]
     Indication: DEPRESSION
     Dosage: 50 MG (50 MG)
  2. TAMOXIFEN CITRATE [Concomitant]
  3. ALL OTHER THERAPEUTIC PRODUCTS (ALL OTHER THERAPEUTIC PRODUCTS) [Concomitant]

REACTIONS (8)
  - BREAST CANCER FEMALE [None]
  - DISTURBANCE IN ATTENTION [None]
  - DYSKINESIA [None]
  - GASTRITIS [None]
  - HERNIA [None]
  - PARAESTHESIA [None]
  - SALIVARY HYPERSECRETION [None]
  - TREMOR [None]
